FAERS Safety Report 4589189-1 (Version None)
Quarter: 2005Q1

REPORT INFORMATION
  Report Type: 
  Country: None (occurrence: None)
  Receive Date: 20050223
  Receipt Date: 20041217
  Transmission Date: 20050727
  Serious: Yes (Hospitalization)
  Sender: FDA-Public Use
  Company Number: NL-JNJFOC-20041205279

PATIENT
  Sex: Female
  Weight: 67.4 kg

DRUGS (5)
  1. INFLIXIMAB [Suspect]
     Route: 042
  2. INFLIXIMAB [Suspect]
     Indication: CROHN'S DISEASE
     Route: 042
  3. AZATHIOPRINE [Concomitant]
     Indication: CROHN'S DISEASE
  4. PREDNISONE [Concomitant]
     Indication: CROHN'S DISEASE
  5. PREDNISONE (ENEMA) [Concomitant]
     Indication: CROHN'S DISEASE

REACTIONS (2)
  - CYTOMEGALOVIRUS INFECTION [None]
  - UNEVALUABLE EVENT [None]
